FAERS Safety Report 17833813 (Version 1)
Quarter: 2020Q2

REPORT INFORMATION
  Report Type: Other
  Country: ES (occurrence: ES)
  Receive Date: 20200528
  Receipt Date: 20200528
  Transmission Date: 20200714
  Serious: Yes (Hospitalization)
  Sender: FDA-Public Use
  Company Number: ES-VISTA PHARMACEUTICALS INC.-2084253

PATIENT
  Age: 47 Year
  Sex: Female

DRUGS (1)
  1. SULFAMETHOXAZOLE AND TRIMETHOPRIM [Suspect]
     Active Substance: SULFAMETHOXAZOLE\TRIMETHOPRIM
     Indication: PULMONARY NOCARDIOSIS
     Route: 065
     Dates: start: 201803, end: 20180421

REACTIONS (5)
  - Disease progression [Recovered/Resolved]
  - Jaundice [Unknown]
  - Choluria [Unknown]
  - Drug-induced liver injury [Unknown]
  - Rash erythematous [Unknown]

NARRATIVE: CASE EVENT DATE: 20180508
